FAERS Safety Report 7287351-0 (Version None)
Quarter: 2011Q1

REPORT INFORMATION
  Report Type: 
  Country: None (occurrence: None)
  Receive Date: 20110211
  Receipt Date: 20101220
  Transmission Date: 20110831
  Serious: Yes (Other)
  Sender: FDA-Public Use
  Company Number: US-BAYER-201020270NA

PATIENT
  Sex: Female

DRUGS (24)
  1. XANAX [Concomitant]
     Indication: STRESS
  2. XANAX [Concomitant]
     Indication: ABDOMINAL PAIN
  3. MUCINEX [Concomitant]
     Indication: SINUS CONGESTION
  4. UNCODEABLE ^UNCLASSIFIABLE^ [Concomitant]
     Indication: ACNE
     Dosage: UNK
     Dates: start: 20100601
  5. PRILOSEC [Concomitant]
     Indication: ABDOMINAL PAIN UPPER
     Dosage: UNK
     Dates: start: 20101001
  6. XANAX [Concomitant]
     Indication: ABDOMINAL PAIN UPPER
  7. AUGMENTIN '125' [Concomitant]
     Indication: SINUS CONGESTION
  8. ASTHALIN [Concomitant]
     Indication: OROPHARYNGEAL PAIN
     Dosage: UNK
     Dates: start: 20090901
  9. ASTHALIN [Concomitant]
     Indication: PRODUCTIVE COUGH
  10. MUCINEX [Concomitant]
     Indication: PRODUCTIVE COUGH
  11. PRILOSEC [Concomitant]
     Indication: ABDOMINAL PAIN
  12. PRILOSEC [Concomitant]
     Indication: STRESS
  13. XANAX [Concomitant]
     Indication: GASTROOESOPHAGEAL REFLUX DISEASE
  14. ANTACIDS [Concomitant]
     Indication: STRESS
  15. ANTACIDS [Concomitant]
     Indication: GASTROOESOPHAGEAL REFLUX DISEASE
  16. ANTACIDS [Concomitant]
     Indication: ABDOMINAL PAIN
  17. ASTHALIN [Concomitant]
     Indication: SINUS CONGESTION
  18. MUCINEX [Concomitant]
     Indication: OROPHARYNGEAL PAIN
     Dosage: UNK
     Dates: start: 20090901
  19. AUGMENTIN '125' [Concomitant]
     Indication: OROPHARYNGEAL PAIN
     Dosage: UNK
     Dates: start: 20090901
  20. AUGMENTIN '125' [Concomitant]
     Indication: PRODUCTIVE COUGH
  21. ANTACIDS [Concomitant]
     Indication: ABDOMINAL PAIN UPPER
  22. YASMIN [Suspect]
     Indication: PRODUCT USED FOR UNKNOWN INDICATION
     Route: 048
     Dates: start: 20030101
  23. HIDROCORTISON [Concomitant]
     Indication: ACNE
     Dosage: UNK
     Dates: start: 20100601
  24. PRILOSEC [Concomitant]
     Indication: GASTROOESOPHAGEAL REFLUX DISEASE

REACTIONS (2)
  - ABDOMINAL PAIN [None]
  - GALLBLADDER INJURY [None]
